FAERS Safety Report 8336643-2 (Version None)
Quarter: 2012Q2

REPORT INFORMATION
  Report Type: 
  Country: None (occurrence: None)
  Receive Date: 20120504
  Receipt Date: 20120424
  Transmission Date: 20120825
  Serious: Yes (Death, Other)
  Sender: FDA-Public Use
  Company Number: JP-GENZYME-THYM-1002101

PATIENT
  Sex: Female
  Weight: 58 kg

DRUGS (26)
  1. MIXED AMINO ACID CARBOHYDRATE ELECTROLYTE COMBINED DRUG [Concomitant]
     Indication: PROPHYLAXIS
     Dosage: UNK
     Route: 065
     Dates: end: 20100129
  2. MULTIVITAMIN [Concomitant]
     Indication: PARENTERAL NUTRITION
     Dosage: UNK
     Route: 065
     Dates: end: 20100203
  3. ACYCLOVIR [Concomitant]
     Indication: PROPHYLAXIS
     Dosage: UNK
     Route: 065
     Dates: start: 20100127, end: 20100203
  4. METHYLPREDNISOLONE SODIUM SUCCINATE [Concomitant]
     Dosage: UNK
     Dates: start: 20100203, end: 20100203
  5. INTRAVENOUS HYPERALIMENTATIVE BASIC SOLUTION [Concomitant]
     Indication: PRODUCT USED FOR UNKNOWN INDICATION
     Dosage: UNK
     Route: 042
     Dates: start: 20100130, end: 20100203
  6. ITRACONAZOLE [Concomitant]
     Indication: PROPHYLAXIS
     Dosage: UNK
     Route: 065
     Dates: end: 20100130
  7. OMEPRAZOLE [Concomitant]
     Indication: PROPHYLAXIS
     Dosage: UNK
     Route: 065
     Dates: start: 20100201, end: 20100203
  8. TEICOPLANIN [Concomitant]
     Indication: PROPHYLAXIS
     Dosage: UNK
     Route: 065
     Dates: end: 20100125
  9. INSULIN HUMAN [Concomitant]
     Indication: PROPHYLAXIS
     Dosage: UNK
     Route: 065
     Dates: start: 20100130, end: 20100130
  10. MEROPENEM [Concomitant]
     Indication: PROPHYLAXIS
     Dosage: UNK
     Route: 065
     Dates: end: 20100204
  11. PREDNISOLONE SODIUM SUCCINATE [Concomitant]
     Indication: PRODUCT USED FOR UNKNOWN INDICATION
     Dosage: UNK
     Route: 065
     Dates: start: 20100123, end: 20100127
  12. MICAFUNGIN SODIUM [Concomitant]
     Indication: PROPHYLAXIS
     Dosage: UNK
     Route: 065
     Dates: start: 20100131, end: 20100203
  13. POTASSIUM CANRENOATE [Concomitant]
     Indication: PRODUCT USED FOR UNKNOWN INDICATION
     Dosage: UNK
     Route: 065
     Dates: start: 20100125, end: 20100129
  14. METHYLPREDNISOLONE SODIUM SUCCINATE [Concomitant]
     Indication: PRODUCT USED FOR UNKNOWN INDICATION
     Dosage: UNK
     Route: 065
     Dates: start: 20100127, end: 20100129
  15. METHYLPREDNISOLONE SODIUM SUCCINATE [Concomitant]
     Dosage: UNK
     Route: 065
     Dates: start: 20100130, end: 20100131
  16. NAFAMOSTAT MESILATE [Concomitant]
     Indication: MULTI-ORGAN FAILURE
     Dosage: UNK
     Route: 065
     Dates: start: 20100128, end: 20100203
  17. BIAPENEM [Concomitant]
     Indication: PROPHYLAXIS
     Dosage: UNK
     Route: 065
     Dates: start: 20100202, end: 20100203
  18. THYMOGLOBULIN [Suspect]
     Indication: ACUTE GRAFT VERSUS HOST DISEASE IN SKIN
     Dosage: 125 MG, QD
     Route: 042
     Dates: start: 20100126, end: 20100130
  19. TEICOPLANIN [Concomitant]
     Dosage: UNK
     Route: 065
     Dates: end: 20100127
  20. LINEZOLID [Concomitant]
     Indication: PROPHYLAXIS
     Dosage: UNK
     Route: 065
     Dates: start: 20100127, end: 20100203
  21. TACROLIMUS [Concomitant]
     Indication: PRODUCT USED FOR UNKNOWN INDICATION
     Dosage: UNK
     Route: 065
     Dates: start: 20100203, end: 20100203
  22. CYCLOSPORINE [Concomitant]
     Indication: PROPHYLAXIS AGAINST GRAFT VERSUS HOST DISEASE
     Dosage: UNK
     Route: 065
     Dates: start: 20100113, end: 20100124
  23. FILGRASTIM [Concomitant]
     Indication: PRODUCT USED FOR UNKNOWN INDICATION
     Dosage: UNK
     Route: 065
     Dates: end: 20100204
  24. MANGANESE CHLORIDE ZINC SULFATE COMBINED DRUG [Concomitant]
     Indication: PRODUCT USED FOR UNKNOWN INDICATION
     Dosage: UNK
     Route: 065
     Dates: end: 20100129
  25. FREEZE-DRIED SULFONATED HUMAN [Concomitant]
     Indication: PRODUCT USED FOR UNKNOWN INDICATION
     Dosage: UNK
     Route: 065
     Dates: start: 20100202, end: 20100202
  26. METHOTREXATE [Concomitant]
     Indication: PROPHYLAXIS AGAINST GRAFT VERSUS HOST DISEASE
     Dosage: UNK
     Route: 065
     Dates: start: 20100115, end: 20100120

REACTIONS (3)
  - ACUTE GRAFT VERSUS HOST DISEASE [None]
  - THERAPEUTIC RESPONSE DECREASED [None]
  - RESPIRATORY FAILURE [None]
